FAERS Safety Report 8434429-1 (Version None)
Quarter: 2012Q2

REPORT INFORMATION
  Report Type: 
  Country: None (occurrence: None)
  Receive Date: 20120614
  Receipt Date: 20120611
  Transmission Date: 20120825
  Serious: Yes (Other)
  Sender: FDA-Public Use
  Company Number: US-AMGEN-USASP2011057518

PATIENT
  Sex: Female
  Weight: 109.7 kg

DRUGS (9)
  1. PROZAC [Concomitant]
     Dosage: 40 MG, QD
     Route: 048
     Dates: start: 20100421
  2. ESTRACE [Concomitant]
     Dosage: 1 DF, QD
     Route: 048
     Dates: start: 20110623
  3. ANAPROX DS [Concomitant]
     Dosage: 2 DF, BID
     Dates: start: 20110707
  4. FLONASE [Concomitant]
     Dosage: 1 DF, QD
     Route: 045
     Dates: start: 20100421
  5. MULTI-VITAMINS [Concomitant]
     Dosage: 1 DF, QD
     Route: 048
     Dates: start: 20100421
  6. MUCINEX [Concomitant]
     Dosage: UNK UNK, PRN
     Route: 048
     Dates: start: 20100505
  7. IBUPROFEN (ADVIL) [Concomitant]
     Dosage: 400 MG, PRN
     Route: 048
     Dates: start: 20110707
  8. ATARAX [Concomitant]
     Dosage: UNK UNK, PRN
     Route: 048
     Dates: start: 20100421
  9. NPLATE [Suspect]
     Indication: IDIOPATHIC THROMBOCYTOPENIC PURPURA
     Dosage: 1 MUG/KG, UNK
     Route: 058
     Dates: start: 20110519, end: 20110825

REACTIONS (1)
  - THERAPEUTIC RESPONSE DECREASED [None]
